FAERS Safety Report 9445024 (Version 2)
Quarter: 2013Q3

REPORT INFORMATION
  Report Type: Spontaneous
  Country: JP (occurrence: JP)
  Receive Date: 20130807
  Receipt Date: 20130830
  Transmission Date: 20140515
  Serious: Yes (Other)
  Sender: FDA-Public Use
  Company Number: JP-JNJFOC-20130802266

PATIENT
  Age: 77 Year
  Sex: Male
  Weight: 59 kg

DRUGS (10)
  1. XARELTO [Suspect]
     Indication: CEREBROVASCULAR ACCIDENT PROPHYLAXIS
     Route: 048
     Dates: start: 201306, end: 20130720
  2. XARELTO [Suspect]
     Indication: ATRIAL FIBRILLATION
     Route: 048
     Dates: start: 201306, end: 20130720
  3. BAYASPIRIN [Concomitant]
     Route: 048
     Dates: start: 201306
  4. CRESTOR [Concomitant]
     Route: 048
  5. DIART [Concomitant]
     Route: 048
  6. AMARYL [Concomitant]
     Route: 048
  7. NESINA [Concomitant]
     Route: 048
  8. GLUCOBAY [Concomitant]
     Route: 048
  9. OPALMON [Concomitant]
     Route: 048
  10. AMIODARONE HYDROCHLORIDE [Concomitant]
     Route: 048
     Dates: start: 20130718

REACTIONS (1)
  - Cerebral infarction [Recovering/Resolving]
